FAERS Safety Report 6239711-4 (Version None)
Quarter: 2009Q2

REPORT INFORMATION
  Report Type: 
  Country: None (occurrence: None)
  Receive Date: 20090619
  Receipt Date: 20090610
  Transmission Date: 20091009
  Serious: Yes (Other)
  Sender: FDA-Public Use
  Company Number: 298808

PATIENT
  Age: 94 Month
  Sex: Male

DRUGS (5)
  1. VINCRISTINE [Suspect]
     Indication: ACUTE LYMPHOCYTIC LEUKAEMIA
     Dosage: 5 DOSES IN 5 CONSECUTIVE WEEKS,
  2. METHOTREXATE [Suspect]
     Indication: ACUTE LYMPHOCYTIC LEUKAEMIA
     Dosage: INTRATHECAL
     Route: 037
  3. DAUNORUBICIN HCL [Concomitant]
  4. PREDNISOLONE [Concomitant]
  5. L-ASPARAGINASE [Concomitant]

REACTIONS (3)
  - CEREBELLAR INFARCTION [None]
  - CEREBRAL INFARCTION [None]
  - CONVULSION [None]
